FAERS Safety Report 23326965 (Version 1)
Quarter: 2023Q4

REPORT INFORMATION
  Report Type: Spontaneous
  Country: FR (occurrence: FR)
  Receive Date: 20231221
  Receipt Date: 20231221
  Transmission Date: 20240109
  Serious: Yes (Hospitalization)
  Sender: FDA-Public Use
  Company Number: None

PATIENT
  Age: 58 Year
  Sex: Male

DRUGS (6)
  1. CARBOPLATIN [Suspect]
     Active Substance: CARBOPLATIN
     Indication: Bronchial carcinoma
     Dosage: 695 MG, SINGLE
     Route: 030
     Dates: start: 20210908, end: 20210908
  2. ALIMTA [Suspect]
     Active Substance: PEMETREXED DISODIUM
     Indication: Bronchial carcinoma
     Dosage: 880 MG, SINGLE
     Route: 030
     Dates: start: 20210908, end: 20210908
  3. KEYTRUDA [Suspect]
     Active Substance: PEMBROLIZUMAB
     Indication: Bronchial carcinoma
     Dosage: 200 MG, SINGLE
     Route: 042
     Dates: start: 20210908, end: 20210908
  4. IOBITRIDOL [Concomitant]
     Active Substance: IOBITRIDOL
     Indication: Computerised tomogram
     Dosage: UNK
     Route: 042
     Dates: start: 20210922
  5. CANDESARTAN [Concomitant]
     Active Substance: CANDESARTAN
  6. APREPITANT [Concomitant]
     Active Substance: APREPITANT

REACTIONS (1)
  - Lichenoid keratosis [Recovered/Resolved]

NARRATIVE: CASE EVENT DATE: 20210926
